FAERS Safety Report 7015611-7 (Version None)
Quarter: 2010Q3

REPORT INFORMATION
  Report Type: 
  Country: None (occurrence: None)
  Receive Date: 20100927
  Receipt Date: 20100920
  Transmission Date: 20110219
  Serious: Yes (Other)
  Sender: FDA-Public Use
  Company Number: US-MERCK-1009USA03829

PATIENT
  Age: 65 Year
  Sex: Male

DRUGS (10)
  1. ZETIA [Suspect]
     Route: 048
  2. LIPITOR [Suspect]
     Route: 065
  3. LIPITOR [Suspect]
     Route: 065
     Dates: start: 20100412
  4. CELEBREX [Suspect]
     Indication: ARTHRITIS
     Route: 065
     Dates: start: 20000101
  5. PLAVIX [Suspect]
     Route: 065
  6. TRICOR [Suspect]
     Route: 065
  7. METFORMIN [Concomitant]
     Route: 065
  8. ASPIRIN [Concomitant]
     Route: 065
  9. AVODART [Concomitant]
     Route: 065
  10. OMEGA-3 MARINE TRIGLYCERIDES [Concomitant]
     Route: 065

REACTIONS (4)
  - CORONARY ARTERY DISEASE [None]
  - MUSCLE SPASMS [None]
  - MUSCULAR WEAKNESS [None]
  - MYALGIA [None]
